FAERS Safety Report 8823146 (Version 1)
Quarter: 2012Q4

REPORT INFORMATION
  Report Type: Report from Study
  Country: US (occurrence: US)
  Receive Date: 20121003
  Receipt Date: 20121003
  Transmission Date: 20130627
  Serious: Yes (Hospitalization, Disabling)
  Sender: FDA-Public Use
  Company Number: US-US-EMD SERONO, INC.-7164512

PATIENT
  Sex: Female

DRUGS (1)
  1. REBIF [Suspect]
     Indication: PRODUCT USED FOR UNKNOWN INDICATION
     Route: 058
     Dates: start: 20120730, end: 201208

REACTIONS (4)
  - Renal impairment [Recovering/Resolving]
  - Pneumonia [Recovering/Resolving]
  - Transfusion [Recovered/Resolved]
  - Abasia [Not Recovered/Not Resolved]
